FAERS Safety Report 8425837-3 (Version None)
Quarter: 2012Q2

REPORT INFORMATION
  Report Type: 
  Country: None (occurrence: None)
  Receive Date: 20120531
  Receipt Date: 20120518
  Transmission Date: 20120825
  Serious: Yes (Other)
  Sender: FDA-Public Use
  Company Number: CZ-1192263

PATIENT
  Age: 4 Year
  Sex: Female

DRUGS (2)
  1. TOBREX [Suspect]
     Indication: EYE INFLAMMATION
     Dosage: (OPHTHALMIC)
     Route: 047
     Dates: start: 20120511, end: 20120511
  2. OTOBACID N [Concomitant]

REACTIONS (6)
  - SWELLING FACE [None]
  - DERMATITIS ALLERGIC [None]
  - DRUG HYPERSENSITIVITY [None]
  - RASH PRURITIC [None]
  - BLISTER [None]
  - RASH MACULO-PAPULAR [None]
